FAERS Safety Report 6294974-4 (Version None)
Quarter: 2009Q3

REPORT INFORMATION
  Report Type: 
  Country: None (occurrence: None)
  Receive Date: 20090730
  Receipt Date: 20090728
  Transmission Date: 20100115
  Serious: Yes (Hospitalization)
  Sender: FDA-Public Use
  Company Number: 2009SP013178

PATIENT
  Age: 40 Year
  Sex: Female
  Weight: 48 kg

DRUGS (3)
  1. CELESTAMINE TAB [Suspect]
     Indication: FOOD ALLERGY
     Dosage: 1 DF; PO
     Route: 048
     Dates: start: 20090501, end: 20090522
  2. ALLEGRA (CON.) [Concomitant]
  3. IPD (CON.) [Concomitant]

REACTIONS (2)
  - HEPATITIS ACUTE [None]
  - LYMPHOCYTE STIMULATION TEST POSITIVE [None]
